FAERS Safety Report 21340149 (Version 1)
Quarter: 2022Q3

REPORT INFORMATION
  Report Type: Spontaneous
  Country: MX (occurrence: MX)
  Receive Date: 20220916
  Receipt Date: 20220916
  Transmission Date: 20221027
  Serious: Yes (Hospitalization, Other)
  Sender: FDA-Public Use
  Company Number: MX-NOVOPROD-956970

PATIENT
  Age: 59 Year
  Sex: Male

DRUGS (1)
  1. XULTOPHY 100/3.6 [Suspect]
     Active Substance: INSULIN DEGLUDEC\LIRAGLUTIDE
     Indication: Diabetes mellitus
     Dosage: 20 DF

REACTIONS (3)
  - Renal surgery [Recovered/Resolved]
  - Ureteric operation [Recovered/Resolved]
  - Bladder operation [Recovered/Resolved]

NARRATIVE: CASE EVENT DATE: 20220501
